FAERS Safety Report 6099024-0 (Version None)
Quarter: 2009Q1

REPORT INFORMATION
  Report Type: 
  Country: None (occurrence: None)
  Receive Date: 20090302
  Receipt Date: 20090218
  Transmission Date: 20090719
  Serious: Yes (Other)
  Sender: FDA-Public Use
  Company Number: AU-PFIZER INC-2009175643

PATIENT

DRUGS (1)
  1. ZELDOX [Suspect]
     Indication: OBSESSIVE-COMPULSIVE DISORDER

REACTIONS (2)
  - DRUG INEFFECTIVE FOR UNAPPROVED INDICATION [None]
  - OBSESSIVE-COMPULSIVE DISORDER [None]
